FAERS Safety Report 14280464 (Version 2)
Quarter: 2018Q2

REPORT INFORMATION
  Report Type: Spontaneous
  Country: US (occurrence: US)
  Receive Date: 20171212
  Receipt Date: 20180412
  Transmission Date: 20180711
  Serious: Yes (Hospitalization)
  Sender: FDA-Public Use
  Company Number: US-NEUROCRINE BIOSCIENCES INC.-2017NBI01760

PATIENT
  Sex: Female

DRUGS (1)
  1. INGREZZA [Suspect]
     Active Substance: VALBENAZINE
     Indication: PRODUCT USED FOR UNKNOWN INDICATION
     Route: 048
     Dates: start: 2017

REACTIONS (6)
  - Irritability [Unknown]
  - Psychiatric decompensation [Unknown]
  - Aggression [Unknown]
  - Tremor [Unknown]
  - Somnolence [Unknown]
  - Eating disorder symptom [Unknown]

NARRATIVE: CASE EVENT DATE: 201711
